FAERS Safety Report 7112665-4 (Version None)
Quarter: 2010Q4

REPORT INFORMATION
  Report Type: 
  Country: None (occurrence: None)
  Receive Date: 20101119
  Receipt Date: 20101105
  Transmission Date: 20110411
  Serious: Yes (Other)
  Sender: FDA-Public Use
  Company Number: PHHY2010JP46212

PATIENT
  Age: 75 Year
  Sex: Male

DRUGS (1)
  1. DIOVAN HCT [Suspect]
     Indication: HYPERTENSION
     Dosage: UNK
     Route: 048

REACTIONS (5)
  - DELIRIUM [None]
  - HYPONATRAEMIA [None]
  - MEMORY IMPAIRMENT [None]
  - MENTAL DISORDER [None]
  - PSYCHIATRIC SYMPTOM [None]
